FAERS Safety Report 17752251 (Version 1)
Quarter: 2020Q2

REPORT INFORMATION
  Report Type: Spontaneous
  Country: US (occurrence: US)
  Receive Date: 20200506
  Receipt Date: 20200506
  Transmission Date: 20200714
  Serious: No
  Sender: FDA-Public Use
  Company Number: US-MYLANLABS-2020M1044497

PATIENT
  Age: 77 Year
  Sex: Male

DRUGS (1)
  1. BUTORPHANOL TARTRATE NASAL SOLUTION, USP [Suspect]
     Active Substance: BUTORPHANOL TARTRATE
     Indication: FACIAL PAIN
     Dosage: 1 DOSAGE FORM, Q4H (IN 1 NOSTRIL EVERY 4 HOURS)
     Route: 045

REACTIONS (3)
  - Product administration error [Not Recovered/Not Resolved]
  - Product dose omission [Unknown]
  - Wrong technique in product usage process [Not Recovered/Not Resolved]
